FAERS Safety Report 7883856-X (Version None)
Quarter: 2011Q4

REPORT INFORMATION
  Report Type: 
  Country: None (occurrence: None)
  Receive Date: 20111102
  Receipt Date: 20111020
  Transmission Date: 20120403
  Serious: Yes (Other)
  Sender: FDA-Public Use
  Company Number: US-ELI_LILLY_AND_COMPANY-US201110006223

PATIENT
  Age: 21 Year
  Sex: Female

DRUGS (3)
  1. STRATTERA [Suspect]
     Indication: ATTENTION DEFICIT/HYPERACTIVITY DISORDER
     Dosage: 80 MG, QD
  2. VALIUM [Concomitant]
  3. ORAL CONTRACEPTIVE NOS [Concomitant]

REACTIONS (3)
  - SUICIDAL BEHAVIOUR [None]
  - AGITATION [None]
  - AGGRESSION [None]
